FAERS Safety Report 16551741 (Version 3)
Quarter: 2020Q2

REPORT INFORMATION
  Report Type: Report from Study
  Country: US (occurrence: US)
  Receive Date: 20190710
  Receipt Date: 20200417
  Transmission Date: 20200713
  Serious: Yes (Other)
  Sender: FDA-Public Use
  Company Number: US-ROCHE-2352548

PATIENT
  Sex: Female

DRUGS (1)
  1. OCREVUS [Suspect]
     Active Substance: OCRELIZUMAB
     Indication: RELAPSING-REMITTING MULTIPLE SCLEROSIS
     Dosage: NEXT DATE OF INFUSION:  18/JUN/2019
     Route: 065
     Dates: start: 20190603

REACTIONS (2)
  - Staphylococcal infection [Recovered/Resolved]
  - Urinary tract infection [Not Recovered/Not Resolved]
